FAERS Safety Report 7190391-3 (Version None)
Quarter: 2010Q4

REPORT INFORMATION
  Report Type: 
  Country: None (occurrence: None)
  Receive Date: 20101223
  Receipt Date: 20101213
  Transmission Date: 20110411
  Serious: Yes (Other)
  Sender: FDA-Public Use
  Company Number: CA-JNJFOC-20101205571

PATIENT
  Sex: Female
  Weight: 72 kg

DRUGS (16)
  1. REMICADE [Suspect]
     Indication: CROHN'S DISEASE
     Route: 042
  2. GABAPENTIN [Concomitant]
     Indication: MIGRAINE
     Dosage: 6 PILLS DAY
  3. IMURAN [Concomitant]
  4. PENTASA [Concomitant]
  5. PREVACID [Concomitant]
  6. METOPROLOL [Concomitant]
     Indication: MIGRAINE
  7. METOPROLOL [Concomitant]
     Indication: HYPERTENSION
  8. CALTRATE [Concomitant]
  9. VITAMIN B-12 [Concomitant]
  10. UNKNOWN ALLERGY SHOTS [Concomitant]
  11. MELATONIN [Concomitant]
  12. VITAMIN D [Concomitant]
  13. MAGNESIUM [Concomitant]
  14. VITAMIN B-12 [Concomitant]
  15. CONJUGATED ESTROGEN [Concomitant]
  16. NOVO-MEDRONE [Concomitant]

REACTIONS (2)
  - CHEST PAIN [None]
  - ULCERATIVE KERATITIS [None]
